FAERS Safety Report 10380942 (Version 2)
Quarter: 2014Q3

REPORT INFORMATION
  Report Type: Spontaneous
  Country: US (occurrence: US)
  Receive Date: 20140813
  Receipt Date: 20140813
  Transmission Date: 20150326
  Serious: Yes (Death, Hospitalization, Other)
  Sender: FDA-Public Use
  Company Number: US-009507513-2008-183584-NL

PATIENT
  Sex: Female
  Weight: 120.7 kg

DRUGS (1)
  1. NUVARING [Suspect]
     Active Substance: ETHINYL ESTRADIOL\ETONOGESTREL
     Indication: CONTRACEPTION
     Dosage: CONTINUING: NA
     Route: 067
     Dates: start: 20060315, end: 200610

REACTIONS (9)
  - Burning sensation [Unknown]
  - Face injury [Unknown]
  - Soft tissue injury [Unknown]
  - Oedema peripheral [Unknown]
  - Cardio-respiratory arrest [Fatal]
  - Deep vein thrombosis [Fatal]
  - Pain in extremity [Unknown]
  - Pulmonary embolism [Fatal]
  - Cystitis [Unknown]

NARRATIVE: CASE EVENT DATE: 200609
